FAERS Safety Report 7203199-7 (Version None)
Quarter: 2010Q4

REPORT INFORMATION
  Report Type: 
  Country: None (occurrence: None)
  Receive Date: 20101230
  Receipt Date: 20101220
  Transmission Date: 20110411
  Serious: Yes (Hospitalization)
  Sender: FDA-Public Use
  Company Number: US-BIOGENIDEC-2010BI024246

PATIENT
  Age: 56 Year
  Sex: Female

DRUGS (2)
  1. AVONEX [Suspect]
     Indication: MULTIPLE SCLEROSIS
     Route: 030
     Dates: start: 20080904
  2. AVONEX [Suspect]
     Route: 030
     Dates: start: 20061224, end: 20080525

REACTIONS (8)
  - ADVERSE DRUG REACTION [None]
  - CONVULSION [None]
  - HEADACHE [None]
  - MEMORY IMPAIRMENT [None]
  - MUSCLE TWITCHING [None]
  - NECK PAIN [None]
  - OVERDOSE [None]
  - PYREXIA [None]
